FAERS Safety Report 7579943-6 (Version None)
Quarter: 2011Q2

REPORT INFORMATION
  Report Type: 
  Country: None (occurrence: None)
  Receive Date: 20110527
  Receipt Date: 20101013
  Transmission Date: 20111010
  Serious: Yes (Hospitalization, Other)
  Sender: FDA-Public Use
  Company Number: US200903001030

PATIENT
  Age: 62 Year
  Sex: Male
  Weight: 99.8 kg

DRUGS (5)
  1. BYETTA [Suspect]
     Indication: TYPE 2 DIABETES MELLITUS
     Dosage: 5 UG, 2/D, SUBCUTANEOUS ; 10 UG, 2/D, SUBCTANEOUS ; 5 UG, 2/D, SUBCUTANEOUS
     Route: 058
     Dates: start: 20081014, end: 20090119
  2. LIPITOR [Concomitant]
  3. HUMALOG [Concomitant]
  4. LISINOPRIL [Concomitant]
  5. GLIPIZIDE [Concomitant]

REACTIONS (8)
  - PANCREATITIS ACUTE [None]
  - DYSPNOEA EXERTIONAL [None]
  - HYPOXIA [None]
  - DEHYDRATION [None]
  - OFF LABEL USE [None]
  - RENAL FAILURE ACUTE [None]
  - RENAL DISORDER [None]
  - BLOOD GLUCOSE INCREASED [None]
